FAERS Safety Report 4623303-4 (Version None)
Quarter: 2005Q1

REPORT INFORMATION
  Report Type: 
  Country: None (occurrence: None)
  Receive Date: 20050329
  Receipt Date: 20050315
  Transmission Date: 20050727
  Serious: Yes (Hospitalization)
  Sender: FDA-Public Use
  Company Number: 2005BI001265

PATIENT
  Age: 65 Year
  Sex: Female
  Weight: 69.8539 kg

DRUGS (7)
  1. AVONEX [Suspect]
     Indication: MULTIPLE SCLEROSIS
     Dosage: 30 UG; QW; IM
     Route: 030
     Dates: start: 20030528, end: 20031224
  2. AVONEX [Suspect]
     Indication: MULTIPLE SCLEROSIS
     Dosage: 30 UG; QW; IM
     Route: 030
     Dates: start: 20040824
  3. DITROPAN XL [Concomitant]
  4. NAPROSYN [Concomitant]
  5. AMITRIPTYLINE HCL [Concomitant]
  6. LOMOTIL [Concomitant]
  7. BACLOFEN [Concomitant]

REACTIONS (3)
  - DISEASE PROGRESSION [None]
  - MULTIPLE SCLEROSIS [None]
  - OSTEOARTHRITIS [None]
